APPROVED DRUG PRODUCT: NEVIRAPINE
Active Ingredient: NEVIRAPINE
Strength: 200MG
Dosage Form/Route: TABLET;ORAL
Application: A202523 | Product #001 | TE Code: AB
Applicant: MYLAN PHARMACEUTICALS INC
Approved: May 22, 2012 | RLD: No | RS: No | Type: RX